FAERS Safety Report 11294584 (Version 1)
Quarter: 2015Q3

REPORT INFORMATION
  Report Type: Spontaneous
  Country: US (occurrence: None)
  Receive Date: 20150722
  Receipt Date: 20150722
  Transmission Date: 20151125
  Serious: No
  Sender: FDA-Public Use
  Company Number: None

PATIENT
  Age: 62 Year
  Sex: Male

DRUGS (2)
  1. VIEKIRA PAK [Suspect]
     Active Substance: DASABUVIR\OMBITASVIR\PARITAPREVIR\RITONAVIR
     Indication: HEPATITIS
     Dosage: V  2-1 QAM, 1QPM
     Route: 048
     Dates: start: 20150619
  2. RIBAVIRIN 200MG ZYDUS [Suspect]
     Active Substance: RIBAVIRIN
     Indication: HEPATITIS
     Dosage: 600MG  QAM + QPM
     Route: 048
     Dates: start: 20150619

REACTIONS (3)
  - Peripheral swelling [None]
  - Weight decreased [None]
  - Joint swelling [None]

NARRATIVE: CASE EVENT DATE: 20150619
